FAERS Safety Report 6468228-7 (Version None)
Quarter: 2009Q4

REPORT INFORMATION
  Report Type: 
  Country: None (occurrence: None)
  Receive Date: 20091130
  Receipt Date: 20091112
  Transmission Date: 20100525
  Serious: Yes (Death, Hospitalization, Other)
  Sender: FDA-Public Use
  Company Number: 1-20719242

PATIENT
  Age: 79 Year
  Sex: Male

DRUGS (2)
  1. WARFARIN SODIUM [Suspect]
     Indication: AORTIC VALVE REPLACEMENT
     Dosage: 5 MG DAILY, ORAL
     Route: 048
  2. ASPIRIN [Concomitant]

REACTIONS (15)
  - ACUTE RESPIRATORY DISTRESS SYNDROME [None]
  - ANTITHROMBIN III [None]
  - AORTIC VALVE INCOMPETENCE [None]
  - CORONARY ARTERY STENOSIS [None]
  - DISSEMINATED INTRAVASCULAR COAGULATION [None]
  - GASTROINTESTINAL HAEMORRHAGE [None]
  - HEPARIN-INDUCED THROMBOCYTOPENIA [None]
  - HEPATIC FUNCTION ABNORMAL [None]
  - PERIPHERAL ARTERIAL OCCLUSIVE DISEASE [None]
  - PNEUMONIA ASPIRATION [None]
  - PROTEIN C DEFICIENCY [None]
  - RENAL FAILURE ACUTE [None]
  - SKIN NECROSIS [None]
  - VASCULITIS [None]
  - WHITE CLOT SYNDROME [None]
